FAERS Safety Report 5732758-3 (Version None)
Quarter: 2008Q2

REPORT INFORMATION
  Report Type: 
  Country: None (occurrence: None)
  Receive Date: 20080509
  Receipt Date: 20080429
  Transmission Date: 20081010
  Serious: Yes (Other)
  Sender: FDA-Public Use
  Company Number: US-BAYER-200821522NA

PATIENT
  Age: 44 Year
  Sex: Female

DRUGS (2)
  1. YAZ [Suspect]
     Indication: MENOPAUSAL SYMPTOMS
     Dates: end: 20071101
  2. YAZ [Suspect]
     Dates: start: 20080101

REACTIONS (1)
  - BLOOD TRIGLYCERIDES INCREASED [None]
